FAERS Safety Report 5140265-4 (Version None)
Quarter: 2006Q4

REPORT INFORMATION
  Report Type: 
  Country: None (occurrence: None)
  Receive Date: 20061031
  Receipt Date: 20060926
  Transmission Date: 20070319
  Serious: Yes (Death)
  Sender: FDA-Public Use
  Company Number: FR-AVENTIS-200613322FR

PATIENT
  Age: 60 Year
  Sex: Female
  Weight: 104 kg

DRUGS (10)
  1. TAXOTERE [Suspect]
     Indication: BREAST CANCER
     Route: 042
     Dates: start: 20060906, end: 20060906
  2. EMEND [Concomitant]
     Indication: NAUSEA
     Route: 048
     Dates: start: 20060906, end: 20060908
  3. EMEND [Concomitant]
     Indication: VOMITING
     Route: 048
     Dates: start: 20060906, end: 20060908
  4. KYTRIL                             /01178101/ [Concomitant]
     Indication: NAUSEA
     Route: 048
     Dates: start: 20060906, end: 20060908
  5. KYTRIL                             /01178101/ [Concomitant]
     Indication: VOMITING
     Route: 048
     Dates: start: 20060906, end: 20060908
  6. PRIMPERAN                          /00041901/ [Concomitant]
     Indication: NAUSEA
     Route: 048
     Dates: start: 20060906, end: 20060910
  7. PRIMPERAN                          /00041901/ [Concomitant]
     Indication: VOMITING
     Route: 048
     Dates: start: 20060906, end: 20060910
  8. DI-ANTALVIC                        /00220901/ [Concomitant]
     Indication: PAIN
     Route: 048
     Dates: start: 20060910
  9. DEXAMETHASONE TAB [Concomitant]
     Indication: PROPHYLAXIS
     Route: 048
     Dates: start: 20060905, end: 20060907
  10. ACUPAN [Concomitant]
     Indication: PAIN
     Dates: start: 20060912, end: 20060913

REACTIONS (4)
  - DIARRHOEA [None]
  - PAIN [None]
  - SUDDEN DEATH [None]
  - VOMITING [None]
